FAERS Safety Report 9311795 (Version 2)
Quarter: 2015Q1

REPORT INFORMATION
  Report Type: Spontaneous
  Country: IT (occurrence: IT)
  Receive Date: 20130528
  Receipt Date: 20150105
  Transmission Date: 20150721
  Serious: Yes (Hospitalization, Other)
  Sender: FDA-Public Use
  Company Number: PHHY2013IT052001

PATIENT
  Sex: Female

DRUGS (2)
  1. PAROXETINE [Suspect]
     Active Substance: PAROXETINE\PAROXETINE HYDROCHLORIDE
     Indication: PANIC DISORDER
     Dosage: 40 MG/DAY
     Dates: start: 200710, end: 200809
  2. PAROXETINE [Suspect]
     Active Substance: PAROXETINE\PAROXETINE HYDROCHLORIDE
     Indication: ANXIETY
     Dosage: 20 MG, QD
     Route: 065
     Dates: start: 2003

REACTIONS (6)
  - Hypomania [Recovered/Resolved]
  - Disinhibition [Recovered/Resolved]
  - Sexually inappropriate behaviour [Recovered/Resolved]
  - Aggression [Recovered/Resolved]
  - Narcissistic personality disorder [Recovered/Resolved]
  - Paranoid personality disorder [Recovered/Resolved]

NARRATIVE: CASE EVENT DATE: 2009
